FAERS Safety Report 12363352 (Version 4)
Quarter: 2019Q4

REPORT INFORMATION
  Report Type: Spontaneous
  Country: US (occurrence: US)
  Receive Date: 20160512
  Receipt Date: 20191218
  Transmission Date: 20200122
  Serious: No
  Sender: FDA-Public Use
  Company Number: US-UCBSA-2015007932

PATIENT
  Age: 73 Year
  Sex: Female
  Weight: 102.95 kg

DRUGS (1)
  1. CIMZIA [Suspect]
     Active Substance: CERTOLIZUMAB PEGOL
     Indication: RHEUMATOID ARTHRITIS
     Dosage: 400 MG, MONTHLY (QM), STRENGTH 200 MG 2/PKG
     Route: 058
     Dates: start: 201308, end: 20140902

REACTIONS (3)
  - Arthritis [Unknown]
  - Migraine [Unknown]
  - Muscle twitching [Recovered/Resolved]

NARRATIVE: CASE EVENT DATE: 201403
